FAERS Safety Report 9787245 (Version 6)
Quarter: 2014Q3

REPORT INFORMATION
  Report Type: Report from Study
  Country: US (occurrence: US)
  Receive Date: 20131229
  Receipt Date: 20140815
  Transmission Date: 20150326
  Serious: Yes (Hospitalization, Other)
  Sender: FDA-Public Use
  Company Number: US-SA-2013SA118036

PATIENT
  Age: 43 Year
  Sex: Female

DRUGS (4)
  1. AUBAGIO [Suspect]
     Active Substance: TERIFLUNOMIDE
     Indication: MULTIPLE SCLEROSIS
     Route: 048
     Dates: start: 20131101
  2. LORTAB [Suspect]
     Active Substance: ACETAMINOPHEN\HYDROCODONE BITARTRATE
     Indication: PRODUCT USED FOR UNKNOWN INDICATION
     Route: 065
  3. MS CONTIN [Suspect]
     Active Substance: MORPHINE SULFATE
     Indication: PRODUCT USED FOR UNKNOWN INDICATION
     Route: 065
  4. ZOFRAN [Concomitant]
     Active Substance: ONDANSETRON HYDROCHLORIDE

REACTIONS (22)
  - Dysphemia [Unknown]
  - Hypoaesthesia [Unknown]
  - Weight decreased [Unknown]
  - White blood cell count decreased [Unknown]
  - Haematochezia [Unknown]
  - Peroneal nerve palsy [Unknown]
  - Convulsion [Unknown]
  - Constipation [Unknown]
  - Multiple sclerosis relapse [Unknown]
  - Nephrolithiasis [Unknown]
  - Tremor [Unknown]
  - Diarrhoea [Unknown]
  - Intervertebral disc protrusion [Unknown]
  - Migraine [Recovering/Resolving]
  - Disability [Unknown]
  - Muscular weakness [Unknown]
  - Alopecia [Unknown]
  - Back pain [Unknown]
  - Surgery [Unknown]
  - Decreased appetite [Unknown]
  - Nausea [Recovering/Resolving]
  - Balance disorder [Unknown]

NARRATIVE: CASE EVENT DATE: 20131213
